FAERS Safety Report 5473230-8 (Version None)
Quarter: 2007Q4

REPORT INFORMATION
  Report Type: 
  Country: None (occurrence: None)
  Receive Date: 20071001
  Receipt Date: 20070918
  Transmission Date: 20080405
  Serious: Yes (Death)
  Sender: FDA-Public Use
  Company Number: IL-ROCHE-514931

PATIENT
  Age: 65 Year
  Sex: Female
  Weight: 48 kg

DRUGS (1)
  1. XELODA [Suspect]
     Dosage: ROUTE REPORTED AS OS.
     Route: 048
     Dates: start: 20070820, end: 20070903

REACTIONS (5)
  - ABDOMINAL PAIN [None]
  - CONSTIPATION [None]
  - NAUSEA [None]
  - PULMONARY EMBOLISM [None]
  - VOMITING [None]
